FAERS Safety Report 6726588-3 (Version None)
Quarter: 2010Q2

REPORT INFORMATION
  Report Type: 
  Country: None (occurrence: None)
  Receive Date: 20100514
  Receipt Date: 20100504
  Transmission Date: 20101027
  Serious: Yes (Death)
  Sender: FDA-Public Use
  Company Number: AU-ELI_LILLY_AND_COMPANY-AU201005000977

PATIENT
  Age: 50 Year
  Sex: Male

DRUGS (3)
  1. FLUOXETINE [Suspect]
     Dosage: UNK, UNKNOWN
  2. CARBAMAZEPINE [Concomitant]
     Dosage: UNK, UNKNOWN
  3. ETHANOL [Concomitant]
     Dosage: UNK, UNKNOWN

REACTIONS (1)
  - DRUG TOXICITY [None]
